FAERS Safety Report 23034196 (Version 2)
Quarter: 2023Q4

REPORT INFORMATION
  Report Type: Report from Study
  Country: SE (occurrence: DK)
  Receive Date: 20231005
  Receipt Date: 20231020
  Transmission Date: 20240109
  Serious: Yes (Death, Hospitalization, Other)
  Sender: FDA-Public Use
  Company Number: SE-ASTELLAS-2023US021467

PATIENT
  Age: 53 Year
  Sex: Male

DRUGS (1)
  1. TACROLIMUS [Suspect]
     Active Substance: TACROLIMUS
     Indication: Product used for unknown indication
     Dosage: UNK UNK, UNKNOWN FREQ.
     Route: 065
     Dates: start: 20190611

REACTIONS (32)
  - Toxicity to various agents [Recovered/Resolved]
  - Bacterial infection [Recovered/Resolved]
  - Fungal infection [Not Recovered/Not Resolved]
  - Bacterial infection [Recovered/Resolved]
  - Viral infection [Recovered/Resolved]
  - Bacterial infection [Recovered/Resolved]
  - Fungal infection [Recovered/Resolved]
  - Fungal infection [Recovered/Resolved]
  - Bacterial infection [Recovered/Resolved]
  - Bacterial infection [Recovered/Resolved]
  - Bacterial infection [Recovered/Resolved]
  - Bacterial infection [Recovered/Resolved]
  - Bacterial infection [Recovered/Resolved]
  - Viral infection [Recovered/Resolved]
  - Bacterial infection [Recovered/Resolved]
  - Diabetes mellitus [Not Recovered/Not Resolved]
  - Pleural effusion [Recovered/Resolved]
  - Anaemia [Recovered/Resolved]
  - Haematoma [Recovered/Resolved]
  - Bacterial infection [Recovered/Resolved]
  - Anastomotic stenosis [Recovered/Resolved]
  - Urinary retention [Recovered/Resolved with Sequelae]
  - Bacterial infection [Recovered/Resolved]
  - Poisoning [Recovered/Resolved]
  - Hallucination [Recovered/Resolved]
  - Hyperkalaemia [Recovered/Resolved]
  - Anaemia [Recovered/Resolved]
  - Hypomagnesaemia [Recovered/Resolved]
  - Anastomotic stenosis [Not Recovered/Not Resolved]
  - Anastomotic stenosis [Recovered/Resolved]
  - Anastomotic stenosis [Not Recovered/Not Resolved]
  - Death [Fatal]

NARRATIVE: CASE EVENT DATE: 20190613
